FAERS Safety Report 23267412 (Version 1)
Quarter: 2023Q4

REPORT INFORMATION
  Report Type: Spontaneous
  Country: US (occurrence: None)
  Receive Date: 20231205
  Receipt Date: 20231205
  Transmission Date: 20240110
  Serious: Yes (Other)
  Sender: FDA-Public Use
  Company Number: None

PATIENT
  Age: 53 Year
  Sex: Female
  Weight: 104.85 kg

DRUGS (6)
  1. SEMAGLUTIDE [Suspect]
     Active Substance: SEMAGLUTIDE
     Indication: Weight decreased
     Dosage: OTHER STRENGTH : UNITS (INT^L?);?OTHER FREQUENCY : ONCE A WEEK;?
     Route: 058
     Dates: start: 20230909, end: 20231202
  2. SEMAGLUTIDE [Suspect]
     Active Substance: SEMAGLUTIDE
     Indication: Glycosylated haemoglobin increased
  3. LETROZOLE [Concomitant]
     Active Substance: LETROZOLE
  4. LINZESS [Concomitant]
     Active Substance: LINACLOTIDE
  5. CITALOPRAM [Concomitant]
     Active Substance: CITALOPRAM HYDROBROMIDE
  6. OMEPRAZOLE [Concomitant]
     Active Substance: OMEPRAZOLE

REACTIONS (3)
  - Mood altered [None]
  - Mental disorder [None]
  - Personal relationship issue [None]

NARRATIVE: CASE EVENT DATE: 20230909
